FAERS Safety Report 6339503-1 (Version None)
Quarter: 2009Q3

REPORT INFORMATION
  Report Type: 
  Country: None (occurrence: None)
  Receive Date: 20090827
  Receipt Date: 20090630
  Transmission Date: 20100115
  Serious: No
  Sender: FDA-Public Use
  Company Number: 001206

PATIENT
  Sex: Male
  Weight: 102 kg

DRUGS (3)
  1. LACOSAMIDE [Suspect]
     Indication: CONVULSION
     Dosage: 100 MG BID ORAL
     Route: 048
     Dates: start: 20090629
  2. KEPPRA [Suspect]
     Indication: CONVULSION
     Dosage: 1500 MG QD ORAL
     Route: 048
     Dates: start: 20040101
  3. ZONEGRAN [Concomitant]

REACTIONS (1)
  - CONVULSION [None]
